FAERS Safety Report 6983338-3 (Version None)
Quarter: 2010Q3

REPORT INFORMATION
  Report Type: 
  Country: None (occurrence: None)
  Receive Date: 20100910
  Receipt Date: 20100826
  Transmission Date: 20110219
  Serious: No
  Sender: FDA-Public Use
  Company Number: 2010080068

PATIENT
  Age: 66 Year
  Sex: Male

DRUGS (17)
  1. ONSOLIS [Suspect]
     Indication: PAIN
     Dosage: TITRATE UP TO 4-200 MCG FILMS/DOSE (UP TO 4 TIMES DAILY), BU
     Route: 002
     Dates: start: 20091021, end: 20091101
  2. ONSOLIS [Suspect]
     Indication: PAIN
     Dosage: TITRATE UP TO 4-200 MCG FILMS/DOSE (UP TO 4 TIMES DAILY), BU
     Route: 002
     Dates: start: 20100801, end: 20100801
  3. HYDROMORPHONE HCL [Concomitant]
  4. FENTANYL-100 [Concomitant]
  5. COMPLETE SENIOR VITAMIN (MULTIVITAMIN) [Concomitant]
  6. NEXIUM [Concomitant]
  7. DEXTROAMPHETAMINE (DEXTROAMPHETAMINE) [Concomitant]
  8. ELLIS TONIC (MULTI-VITAMIN) [Concomitant]
  9. FOLIC ACID [Concomitant]
  10. MAXITROL (DEXAMETHASONE) [Concomitant]
  11. MELOXICAM [Concomitant]
  12. MIRALAX [Concomitant]
  13. VITAMIN B12 [Concomitant]
  14. MEGESTROL ACETATE [Concomitant]
  15. MIRTAZAPINE [Concomitant]
  16. ACTONEL [Concomitant]
  17. EVOXAC [Concomitant]

REACTIONS (3)
  - ILL-DEFINED DISORDER [None]
  - INCORRECT STORAGE OF DRUG [None]
  - PRODUCT PACKAGING ISSUE [None]
